FAERS Safety Report 15201613 (Version 1)
Quarter: 2018Q3

REPORT INFORMATION
  Report Type: Spontaneous
  Country: PL (occurrence: PL)
  Receive Date: 20180726
  Receipt Date: 20180726
  Transmission Date: 20181010
  Serious: Yes (Hospitalization, Other)
  Sender: FDA-Public Use
  Company Number: PL-RICON PHARMA, LLC-RIC201807-000718

PATIENT
  Age: 5 Year
  Sex: Female
  Weight: 20 kg

DRUGS (2)
  1. LIDOCAINE. [Suspect]
     Active Substance: LIDOCAINE
  2. ADRENALINE [Concomitant]
     Active Substance: EPINEPHRINE

REACTIONS (6)
  - Laryngospasm [Recovered/Resolved]
  - Accidental overdose [Recovered/Resolved]
  - Vagus nerve paralysis [Recovered/Resolved]
  - Bradycardia [Recovered/Resolved]
  - Facial paralysis [Recovered/Resolved]
  - Oxygen saturation immeasurable [Recovered/Resolved]
